FAERS Safety Report 17972291 (Version 1)
Quarter: 2020Q3

REPORT INFORMATION
  Report Type: Spontaneous
  Country: US (occurrence: US)
  Receive Date: 20200702
  Receipt Date: 20200702
  Transmission Date: 20201103
  Serious: No
  Sender: FDA-Public Use
  Company Number: US-ELI_LILLY_AND_COMPANY-US202006012876

PATIENT
  Sex: Female

DRUGS (1)
  1. BASAGLAR [Suspect]
     Active Substance: INSULIN GLARGINE
     Indication: TYPE 2 DIABETES MELLITUS
     Dosage: 16 U, DAILY
     Route: 058

REACTIONS (5)
  - Genital pain [Recovered/Resolved]
  - Blood glucose increased [Unknown]
  - Accidental underdose [Unknown]
  - Genital haemorrhage [Recovered/Resolved]
  - Solar lentigo [Unknown]
